FAERS Safety Report 11468567 (Version 1)
Quarter: 2015Q3

REPORT INFORMATION
  Report Type: Spontaneous
  Country: US (occurrence: None)
  Receive Date: 20150904
  Receipt Date: 20150904
  Transmission Date: 20151125
  Serious: Yes (Other)
  Sender: FDA-Public Use
  Company Number: None

PATIENT
  Age: 42 Year
  Sex: Male
  Weight: 81.65 kg

DRUGS (5)
  1. ZINC [Concomitant]
     Active Substance: ZINC\ZINC CHLORIDE
  2. LYSINE [Concomitant]
     Active Substance: LYSINE
  3. CIPROFLOXACIN 250 MG [Suspect]
     Active Substance: CIPROFLOXACIN
     Indication: PROSTATITIS
     Dosage: 1 PILL EVERY 12 HOURS
     Route: 048
     Dates: start: 20150813, end: 20150821
  4. MEN^S OVER 40 MULTI-VITAMIN [Concomitant]
  5. FISH OIL [Concomitant]
     Active Substance: FISH OIL

REACTIONS (6)
  - Tendon pain [None]
  - Arthralgia [None]
  - Impaired work ability [None]
  - Abasia [None]
  - Pain in extremity [None]
  - Fatigue [None]

NARRATIVE: CASE EVENT DATE: 20150821
